FAERS Safety Report 6020434-1 (Version None)
Quarter: 2008Q4

REPORT INFORMATION
  Report Type: 
  Country: None (occurrence: None)
  Receive Date: 20081226
  Receipt Date: 20081218
  Transmission Date: 20090506
  Serious: Yes (Hospitalization)
  Sender: FDA-Public Use
  Company Number: ES-ROCHE-603727

PATIENT
  Age: 40 Year
  Sex: Female

DRUGS (3)
  1. XELODA [Suspect]
     Dosage: DOSAGE REGIMEN: UNK/CYCLE STRENGTH AND FORMULATION: 150 MG/ FILM-COATED TABLET.
     Route: 048
     Dates: start: 20080525, end: 20080608
  2. OMEPRAZOLE [Concomitant]
     Route: 048
  3. ZOMETA [Concomitant]
     Indication: DRUG USE FOR UNKNOWN INDICATION
     Dosage: DOSAGE REGIMEN : UNK/CYCLE STRENGTH AND FORMULATION: 4 MG/VIAL-PERFUSION SOLUTION.
     Route: 042
     Dates: start: 20050101

REACTIONS (6)
  - ABDOMINAL PAIN [None]
  - DIARRHOEA [None]
  - PRURITUS [None]
  - PYREXIA [None]
  - RASH ERYTHEMATOUS [None]
  - RECTAL HAEMORRHAGE [None]
